FAERS Safety Report 8959168 (Version 3)
Quarter: 2013Q1

REPORT INFORMATION
  Report Type: Spontaneous
  Country: JP (occurrence: JP)
  Receive Date: 20121212
  Receipt Date: 20130118
  Transmission Date: 20140127
  Serious: Yes (Hospitalization)
  Sender: FDA-Public Use
  Company Number: JP-ELI_LILLY_AND_COMPANY-JP201211003097

PATIENT
  Age: 81 Year
  Sex: Female

DRUGS (16)
  1. CYMBALTA [Suspect]
     Indication: DIABETIC NEUROPATHY
     Dosage: 20 MG, QD
     Route: 048
     Dates: start: 20120915, end: 20120928
  2. CYMBALTA [Suspect]
     Dosage: 40 MG, QD
     Route: 048
     Dates: start: 20120929, end: 20121111
  3. RIVASTIGMINE [Concomitant]
     Indication: DEMENTIA ALZHEIMER^S TYPE
     Dosage: UNK
     Route: 062
     Dates: start: 201209
  4. RIVASTIGMINE [Concomitant]
     Dosage: UNK
     Route: 062
  5. RISPERDAL [Concomitant]
     Route: 048
  6. FRANDOL [Concomitant]
     Indication: ANGINA PECTORIS
     Dosage: 40 MG, QD
     Route: 062
  7. HOKUNALIN [Concomitant]
     Indication: ASTHMA
     Dosage: 2 MG, QD
     Route: 062
  8. TAKEPRON [Concomitant]
     Dosage: 15 MG, QD
     Route: 048
  9. MUCODYNE [Concomitant]
     Dosage: 500 MG, TID
     Route: 048
  10. MAGMITT [Concomitant]
     Dosage: 500 MG, TID
     Route: 048
  11. EVAMYL [Concomitant]
     Dosage: 1 MG, QD
     Route: 048
  12. YOKUKAN-SAN [Concomitant]
     Dosage: 2.5 G, QD
     Route: 048
  13. ONON [Concomitant]
     Indication: ASTHMA
     Dosage: 250 MG, BID
     Route: 048
  14. GASMOTIN [Concomitant]
     Dosage: 5 MG, TID
     Route: 048
  15. DIOVAN [Concomitant]
     Indication: HYPERTENSION
     Dosage: 80 MG, QD
     Route: 048
  16. NORVASC [Concomitant]
     Indication: HYPERTENSION
     Dosage: 5 MG, QD
     Route: 048

REACTIONS (4)
  - Acute abdomen [Recovered/Resolved]
  - Neuroleptic malignant syndrome [Recovered/Resolved]
  - Anger [Recovered/Resolved]
  - Aggression [Recovered/Resolved]
